FAERS Safety Report 4379107-3 (Version None)
Quarter: 2004Q2

REPORT INFORMATION
  Report Type: 
  Country: None (occurrence: None)
  Receive Date: 20040610
  Receipt Date: 20040519
  Transmission Date: 20050107
  Serious: Yes (Other)
  Sender: FDA-Public Use
  Company Number: DE-JNJFOC-20040500404

PATIENT
  Sex: 0

DRUGS (5)
  1. REOPRO (ABCIXIMAB) INJECTION [Suspect]
     Indication: ACUTE MYOCARDIAL INFARCTION
     Dosage: 0.25 MG/KG, 1 IN 1 TOTAL, INTRAVENOUS;  0.125 UG/KG/MIN, 1 IN 12 HOUR, INTRAVENOUS
     Route: 042
  2. RETEPLASE (RETEPLASE) LYOPHILIZED POWDER [Suspect]
     Indication: ACUTE MYOCARDIAL INFARCTION
     Dosage: 0.5 IU, 2 IN 1 TOTAL, INTRAVENOUS
     Route: 042
  3. ASPIRIN [Concomitant]
  4. HEPARIN [Concomitant]
  5. CLOPIDOGREL (CLOPIDOGREL) [Concomitant]

REACTIONS (2)
  - DRUG INTERACTION [None]
  - VENTRICULAR FIBRILLATION [None]
